FAERS Safety Report 6180480-4 (Version None)
Quarter: 2009Q2

REPORT INFORMATION
  Report Type: 
  Country: None (occurrence: None)
  Receive Date: 20090416
  Receipt Date: 20090403
  Transmission Date: 20091009
  Serious: Yes (Hospitalization, Other)
  Sender: FDA-Public Use
  Company Number: THYM-1000906

PATIENT
  Age: 56 Year
  Sex: Female

DRUGS (17)
  1. THYMOGLOBULIN [Suspect]
     Indication: ALLERGENIC DESENSITISATION PROCEDURE
     Dosage: 1.5 MG/KG, QD, INTRAVENOUS
     Route: 042
     Dates: start: 20090105, end: 20090114
  2. THYMOGLOBULIN [Suspect]
     Indication: RENAL TRANSPLANT
     Dosage: 1.5 MG/KG, QD, INTRAVENOUS
     Route: 042
     Dates: start: 20090105, end: 20090114
  3. RITUXAN [Concomitant]
  4. CELLCEPT [Concomitant]
  5. PLASMAPHERESIS (PLASMAPHERESIS) [Concomitant]
  6. SOLU-MEDROL [Concomitant]
  7. SEPTRA [Concomitant]
  8. TOPROL-XL [Concomitant]
  9. NORVASC [Concomitant]
  10. PREDNISONE TAB [Concomitant]
  11. DIATX (CYANOCOBALAMIN, FOLIC ACID, PYRIDOXINE) [Concomitant]
  12. PROTONIX [Concomitant]
  13. VALCYTE [Concomitant]
  14. ACIPHEX [Concomitant]
  15. BIOTIN (BIOTIN) [Concomitant]
  16. RENAGEL [Concomitant]
  17. ZETIA [Concomitant]

REACTIONS (1)
  - SERUM SICKNESS [None]
